FAERS Safety Report 21571885 (Version 1)
Quarter: 2022Q4

REPORT INFORMATION
  Report Type: Spontaneous
  Country: US (occurrence: None)
  Receive Date: 20221107
  Receipt Date: 20221107
  Transmission Date: 20230112
  Serious: Yes (Hospitalization)
  Sender: FDA-Public Use
  Company Number: None

PATIENT
  Age: 63 Year
  Sex: Male
  Weight: 49.5 kg

DRUGS (20)
  1. HUMIRA [Suspect]
     Active Substance: ADALIMUMAB
     Dosage: FREQUENCY : EVERY OTHER WEEK;?
     Dates: end: 20201110
  2. BUDESONIDE [Suspect]
     Active Substance: BUDESONIDE
     Dosage: FREQUENCY : DAILY;?
  3. ASPIRIN [Concomitant]
     Active Substance: ASPIRIN
  4. CALCIUM\MAGNESIUM [Concomitant]
     Active Substance: CALCIUM\MAGNESIUM
  5. CHOLECALCIFEROL [Concomitant]
     Active Substance: CHOLECALCIFEROL
  6. COPPER GLUCONATE [Concomitant]
     Active Substance: COPPER GLUCONATE
  7. CYANOCOBALAMIN [Concomitant]
     Active Substance: CYANOCOBALAMIN
  8. DALTEPARIN [Concomitant]
     Active Substance: DALTEPARIN
  9. ATROPINE\DIPHENOXYLATE [Concomitant]
     Active Substance: ATROPINE\DIPHENOXYLATE
  10. Ferrous Gluconate iron [Concomitant]
  11. LISINOPRIL [Concomitant]
     Active Substance: LISINOPRIL
  12. LOPERAMIDE [Concomitant]
     Active Substance: LOPERAMIDE
  13. VITAMINS [Concomitant]
     Active Substance: VITAMINS
  14. METOPROLOL SUCCINATE [Concomitant]
     Active Substance: METOPROLOL SUCCINATE
  15. ONDANSETRON [Concomitant]
     Active Substance: ONDANSETRON
  16. OPIUM [Concomitant]
     Active Substance: OPIUM
  17. PENTASA [Concomitant]
     Active Substance: MESALAMINE
  18. RIFAXIMIN [Concomitant]
     Active Substance: RIFAXIMIN
  19. ROSUVASTATIN CALCIUM [Concomitant]
  20. ZINC SULFATE [Concomitant]
     Active Substance: ZINC SULFATE

REACTIONS (4)
  - Chest pain [None]
  - Hyperhidrosis [None]
  - Coronary artery stenosis [None]
  - Aphasia [None]

NARRATIVE: CASE EVENT DATE: 20201111
